FAERS Safety Report 8499776-6 (Version None)
Quarter: 2012Q3

REPORT INFORMATION
  Report Type: 
  Country: None (occurrence: None)
  Receive Date: 20120710
  Receipt Date: 20120702
  Transmission Date: 20120928
  Serious: Yes (Hospitalization)
  Sender: FDA-Public Use
  Company Number: DE-SANOFI-AVENTIS-2011SA082344

PATIENT
  Age: 49 Year
  Sex: Female
  Weight: 68 kg

DRUGS (4)
  1. CAPECITABINE [Suspect]
     Indication: RECTAL CANCER
     Dosage: 825 MG/M2 D1-33 W/O WEEKENDS + OPTIONAL BOOST
     Route: 048
     Dates: start: 20110628, end: 20110726
  2. THERAPEUTIC RADIOPHARMACEUTICALS [Suspect]
     Dosage: 50.4 GY TOTAL DOSE; 1.8 GY ON D 1-33 W/O WEEKENDS + OPTIONAL BOOST
     Route: 065
     Dates: start: 20110628, end: 20110726
  3. ELOXATIN [Suspect]
     Indication: RECTAL CANCER
     Dosage: 50 MG/M2 ON D1, 8, 15, 22, 29, ACTUAL DOSE: 50.4 GY
     Route: 042
     Dates: start: 20110628, end: 20110726
  4. LISINOPRIL [Concomitant]
     Indication: HYPERTENSION
     Route: 048

REACTIONS (1)
  - FAILURE TO ANASTOMOSE [None]
